FAERS Safety Report 20152272 (Version 3)
Quarter: 2022Q1

REPORT INFORMATION
  Report Type: Spontaneous
  Country: US (occurrence: US)
  Receive Date: 20211206
  Receipt Date: 20220124
  Transmission Date: 20220424
  Serious: Yes (Death, Hospitalization)
  Sender: FDA-Public Use
  Company Number: US-PFIZER INC-202101713663

PATIENT
  Age: 86 Year
  Sex: Male
  Weight: 65.306 kg

DRUGS (1)
  1. VYNDAMAX [Suspect]
     Active Substance: TAFAMIDIS
     Dosage: 61 MG

REACTIONS (24)
  - Acute respiratory failure [Fatal]
  - Metabolic acidosis [Fatal]
  - Shock [Fatal]
  - Pulmonary embolism [Fatal]
  - Acute kidney injury [Fatal]
  - Pancytopenia [Fatal]
  - Acute myocardial infarction [Fatal]
  - Pleural effusion [Fatal]
  - Rheumatoid arthritis [Unknown]
  - Atrial fibrillation [Unknown]
  - Amyloidosis senile [Unknown]
  - Cardiac amyloidosis [Unknown]
  - Gastrointestinal haemorrhage [Unknown]
  - Lactic acidosis [Unknown]
  - Cardiac failure [Unknown]
  - Hypertension [Unknown]
  - Renal impairment [Unknown]
  - Haemorrhage [Unknown]
  - Faeces discoloured [Not Recovered/Not Resolved]
  - Haemoptysis [Unknown]
  - Haemoglobin decreased [Unknown]
  - Hypotension [Unknown]
  - Hepatic function abnormal [Unknown]
  - Mean arterial pressure decreased [Unknown]
